FAERS Safety Report 5642282-4 (Version None)
Quarter: 2008Q1

REPORT INFORMATION
  Report Type: 
  Country: None (occurrence: None)
  Receive Date: 20080226
  Receipt Date: 20080214
  Transmission Date: 20080703
  Serious: Yes (Death)
  Sender: FDA-Public Use
  Company Number: 20080037

PATIENT
  Sex: Male

DRUGS (1)
  1. VENOFER [Suspect]
     Indication: ANAEMIA POSTOPERATIVE
     Dosage: 300 MG INTRAVENOUS
     Route: 042
     Dates: start: 20071101, end: 20071101

REACTIONS (1)
  - ACUTE MYOCARDIAL INFARCTION [None]
